FAERS Safety Report 15189568 (Version 1)
Quarter: 2018Q3

REPORT INFORMATION
  Report Type: Spontaneous
  Country: ZA (occurrence: ZA)
  Receive Date: 20180724
  Receipt Date: 20180724
  Transmission Date: 20181010
  Serious: Yes (Hospitalization)
  Sender: FDA-Public Use
  Company Number: ZA-PFIZER INC-2018294378

PATIENT
  Age: 51 Year
  Sex: Female

DRUGS (4)
  1. BE?TABS PREDNISONE [Suspect]
     Active Substance: PREDNISONE
     Dosage: UNK
  2. SALAZOPYRIN EN [Suspect]
     Active Substance: SULFASALAZINE
     Dosage: UNK
  3. BE?TABS FOLIC ACID [Suspect]
     Active Substance: FOLIC ACID
     Dosage: UNK
  4. METHOTREXATE. [Suspect]
     Active Substance: METHOTREXATE
     Dosage: UNK

REACTIONS (1)
  - Malaise [Unknown]
